FAERS Safety Report 14314551 (Version 1)
Quarter: 2017Q4

REPORT INFORMATION
  Report Type: Spontaneous
  Country: US (occurrence: US)
  Receive Date: 20171221
  Receipt Date: 20171221
  Transmission Date: 20180321
  Serious: Yes (Other)
  Sender: FDA-Public Use
  Company Number: None

PATIENT
  Age: 43 Year
  Sex: Female
  Weight: 69.3 kg

DRUGS (6)
  1. SERTALINE [Suspect]
     Active Substance: SERTRALINE HYDROCHLORIDE
     Indication: BIPOLAR DISORDER
     Dosage: ?          QUANTITY:2 TABLET(S);?
     Route: 048
     Dates: start: 20171116
  2. SYNTHROID [Concomitant]
     Active Substance: LEVOTHYROXINE SODIUM
  3. GABAPENTON [Concomitant]
  4. LAMICTAL [Concomitant]
     Active Substance: LAMOTRIGINE
  5. KLONOPIN [Concomitant]
     Active Substance: CLONAZEPAM
  6. LITHYOINIE [Concomitant]

REACTIONS (3)
  - Product substitution issue [None]
  - Mental disorder [None]
  - Condition aggravated [None]

NARRATIVE: CASE EVENT DATE: 20171201
